FAERS Safety Report 7571641-8 (Version None)
Quarter: 2011Q2

REPORT INFORMATION
  Report Type: 
  Country: None (occurrence: None)
  Receive Date: 20110624
  Receipt Date: 20110615
  Transmission Date: 20111010
  Serious: Yes (Hospitalization)
  Sender: FDA-Public Use
  Company Number: GB-MERCK-1106GBR00078

PATIENT
  Sex: Male

DRUGS (19)
  1. JANUVIA [Suspect]
     Route: 048
     Dates: start: 20110424
  2. METFORMIN [Concomitant]
     Route: 065
  3. INSULIN [Concomitant]
     Route: 065
  4. FOLIC ACID [Concomitant]
     Route: 065
  5. PRAMIPEXOLE [Concomitant]
     Route: 065
  6. LISINOPRIL [Concomitant]
     Route: 048
  7. FLUOXETINE [Concomitant]
     Route: 065
  8. ISOSORBIDE [Concomitant]
     Route: 065
  9. ROSUVASTATIN CALCIUM [Concomitant]
     Route: 065
  10. ALUMINUM HYDROXIDE AND MAGNESIUM CARBONATE [Concomitant]
     Route: 065
  11. CLONAZEPAM [Concomitant]
     Route: 065
  12. MORPHINE SULFATE [Concomitant]
     Route: 065
  13. DILTIAZEM HYDROCHLORIDE [Concomitant]
     Route: 065
  14. GLICLAZIDE [Concomitant]
     Route: 065
  15. MORPHINE SULFATE [Concomitant]
     Route: 065
  16. EXENATIDE [Concomitant]
     Route: 065
  17. OMEGA-3 ACID ETHYL ESTERS [Concomitant]
     Route: 065
  18. FUROSEMIDE [Concomitant]
     Route: 065
  19. NITROGLYCERIN [Concomitant]
     Route: 065

REACTIONS (6)
  - HYPERHIDROSIS [None]
  - CIRCULATORY COLLAPSE [None]
  - AGITATION [None]
  - AMNESIA [None]
  - IRRITABILITY [None]
  - DISTURBANCE IN ATTENTION [None]
